FAERS Safety Report 25714865 (Version 1)
Quarter: 2025Q3

REPORT INFORMATION
  Report Type: Spontaneous
  Country: CN (occurrence: CN)
  Receive Date: 20250822
  Receipt Date: 20250822
  Transmission Date: 20251020
  Serious: Yes (Other)
  Sender: ADAPTIS PHARMA INDIA
  Company Number: CN-Adaptis Pharma Private Limited-2182997

PATIENT
  Age: 29 Year
  Sex: Male

DRUGS (1)
  1. IBUPROFEN [Suspect]
     Active Substance: IBUPROFEN
     Indication: Myalgia

REACTIONS (1)
  - Drug-induced liver injury [Not Recovered/Not Resolved]
